FAERS Safety Report 8217674-X (Version None)
Quarter: 2012Q1

REPORT INFORMATION
  Report Type: 
  Country: None (occurrence: None)
  Receive Date: 20120315
  Receipt Date: 20120307
  Transmission Date: 20120608
  Serious: Yes (Hospitalization, Other)
  Sender: FDA-Public Use
  Company Number: 1221127

PATIENT
  Age: 82 Year
  Sex: Male

DRUGS (8)
  1. (CEFOTAX) [Concomitant]
  2. (IPRATROPIUM) [Concomitant]
  3. ALBUTEROL [Concomitant]
  4. CRESTOR [Concomitant]
  5. DIMENHYDRINATE [Concomitant]
  6. (ACETAMINOPHEN) [Concomitant]
  7. CIPROFLOXACIN [Suspect]
     Indication: PRODUCT USED FOR UNKNOWN INDICATION
     Dosage: 400MG, 1 EVERY 12 HOUR(S)
     Route: 042
  8. PANTOPRAZOLE [Concomitant]

REACTIONS (5)
  - ACUTE GENERALISED EXANTHEMATOUS PUSTULOSIS [None]
  - PRURITUS [None]
  - AGITATION [None]
  - SKIN IRRITATION [None]
  - ERYTHEMA [None]
